FAERS Safety Report 5126664-5 (Version None)
Quarter: 2006Q4

REPORT INFORMATION
  Report Type: 
  Country: None (occurrence: None)
  Receive Date: 20061012
  Receipt Date: 20061012
  Transmission Date: 20070319
  Serious: Yes (Hospitalization)
  Sender: FDA-Public Use
  Company Number: None

PATIENT
  Age: 67 Year
  Sex: Male
  Weight: 117.5 kg

DRUGS (1)
  1. PHENYTOIN [Suspect]
     Indication: CONVULSION
     Dosage: 400MG, 200MG BID ORAL
     Route: 048
     Dates: start: 20060630, end: 20060813

REACTIONS (3)
  - DIARRHOEA [None]
  - JAUNDICE [None]
  - RASH [None]
